FAERS Safety Report 23792315 (Version 2)
Quarter: 2024Q2

REPORT INFORMATION
  Report Type: Report from Study
  Country: US (occurrence: US)
  Receive Date: 20240429
  Receipt Date: 20240502
  Transmission Date: 20240716
  Serious: Yes (Other)
  Sender: FDA-Public Use
  Company Number: US-INSMED, INC.-2024-01163-US

PATIENT
  Sex: Female

DRUGS (1)
  1. ARIKAYCE [Suspect]
     Active Substance: AMIKACIN
     Indication: Mycobacterium avium complex infection
     Dosage: 590 MILLIGRAM, QD
     Route: 055
     Dates: start: 202305

REACTIONS (9)
  - Pharyngeal haemorrhage [Unknown]
  - Abdominal discomfort [Unknown]
  - Cough [Recovered/Resolved]
  - Fatigue [Recovered/Resolved]
  - Haemoptysis [Not Recovered/Not Resolved]
  - Dyspnoea [Unknown]
  - Device issue [Unknown]
  - Drug dose omission by device [Unknown]
  - Device connection issue [Unknown]
